FAERS Safety Report 6215212-4 (Version None)
Quarter: 2009Q2

REPORT INFORMATION
  Report Type: 
  Country: None (occurrence: None)
  Receive Date: 20090604
  Receipt Date: 20071227
  Transmission Date: 20091009
  Serious: Yes (Other)
  Sender: FDA-Public Use
  Company Number: US-PFIZER INC-2008000690

PATIENT
  Sex: Female
  Weight: 46.3 kg

DRUGS (1)
  1. CHANTIX [Suspect]
     Indication: SMOKING CESSATION THERAPY
     Dosage: 2.5 MG, 2X/DAY
     Route: 048
     Dates: start: 20071001

REACTIONS (4)
  - MALAISE [None]
  - NEUROLOGICAL SYMPTOM [None]
  - PAIN [None]
  - SURGERY [None]
